FAERS Safety Report 5620288-9 (Version None)
Quarter: 2008Q1

REPORT INFORMATION
  Report Type: 
  Country: None (occurrence: None)
  Receive Date: 20080208
  Receipt Date: 20080207
  Transmission Date: 20080703
  Serious: Yes (Other)
  Sender: FDA-Public Use
  Company Number: A0708012A

PATIENT
  Age: 21 Year
  Sex: Female

DRUGS (1)
  1. ALLI [Suspect]
     Dates: start: 20080202

REACTIONS (3)
  - DIZZINESS [None]
  - SYNCOPE [None]
  - TREMOR [None]
